FAERS Safety Report 16829678 (Version 1)
Quarter: 2019Q3

REPORT INFORMATION
  Report Type: Spontaneous
  Country: US (occurrence: US)
  Receive Date: 20190919
  Receipt Date: 20190919
  Transmission Date: 20191005
  Serious: No
  Sender: FDA-Public Use
  Company Number: PHEH2019US038077

PATIENT
  Sex: Female

DRUGS (4)
  1. MUCINEX [Suspect]
     Active Substance: GUAIFENESIN
     Indication: BRONCHITIS
     Dosage: UNK
     Route: 065
  2. OTRIVIN [Suspect]
     Active Substance: XYLOMETAZOLINE
     Indication: BRONCHITIS
     Dosage: UNK
     Route: 065
  3. COSENTYX [Suspect]
     Active Substance: SECUKINUMAB
     Indication: PRODUCT USED FOR UNKNOWN INDICATION
     Dosage: 300 MG, UNK
     Route: 065
     Dates: start: 201901
  4. CEPHALEXIN. [Suspect]
     Active Substance: CEPHALEXIN
     Indication: ABSCESS
     Dosage: 500 MG, UNK
     Route: 065
     Dates: start: 20190823

REACTIONS (3)
  - Bronchitis [Unknown]
  - Abscess [Unknown]
  - Anosmia [Unknown]
